FAERS Safety Report 15826600 (Version 1)
Quarter: 2019Q1

REPORT INFORMATION
  Report Type: Spontaneous
  Country: US (occurrence: US)
  Receive Date: 20190115
  Receipt Date: 20190115
  Transmission Date: 20190417
  Serious: No
  Sender: FDA-Public Use
  Company Number: US-PFIZER INC-2019016172

PATIENT
  Age: 1 Year
  Sex: Female

DRUGS (1)
  1. GENOTROPIN [Suspect]
     Active Substance: SOMATROPIN
     Indication: SEPTO-OPTIC DYSPLASIA
     Dosage: 0.4 MG, DAILY
     Dates: start: 20170204

REACTIONS (13)
  - Specific gravity urine abnormal [Unknown]
  - Blood osmolarity decreased [Unknown]
  - Protein urine present [Unknown]
  - Urine ketone body present [Unknown]
  - Product use in unapproved indication [Unknown]
  - Urine abnormality [Unknown]
  - Blood glucose increased [Unknown]
  - Insulin-like growth factor decreased [Unknown]
  - Globulins decreased [Unknown]
  - Thyroxine increased [Unknown]
  - White blood cells urine positive [Unknown]
  - Blood urine [Unknown]
  - Urine osmolarity decreased [Unknown]

NARRATIVE: CASE EVENT DATE: 20170204
